FAERS Safety Report 17184166 (Version 1)
Quarter: 2019Q4

REPORT INFORMATION
  Report Type: Spontaneous
  Country: US (occurrence: US)
  Receive Date: 20191219
  Receipt Date: 20191219
  Transmission Date: 20200122
  Serious: No
  Sender: FDA-Public Use
  Company Number: None

PATIENT
  Age: 59 Year
  Sex: Female
  Weight: 90 kg

DRUGS (1)
  1. PERFLUTREN [Suspect]
     Active Substance: PERFLUTREN
     Indication: STRESS ECHOCARDIOGRAM
     Dosage: ?          OTHER FREQUENCY:ONCE;?
     Route: 042
     Dates: start: 20190402, end: 20190402

REACTIONS (5)
  - Erythema [None]
  - Throat irritation [None]
  - Throat tightness [None]
  - Eye swelling [None]
  - Anaphylactic reaction [None]

NARRATIVE: CASE EVENT DATE: 20190402
